FAERS Safety Report 7738013-4 (Version None)
Quarter: 2011Q3

REPORT INFORMATION
  Report Type: 
  Country: None (occurrence: None)
  Receive Date: 20110906
  Receipt Date: 20110822
  Transmission Date: 20111222
  Serious: Yes (Disabling, Other)
  Sender: FDA-Public Use
  Company Number: NGX_00535_2011

PATIENT
  Age: 82 Year
  Sex: Male

DRUGS (3)
  1. QUTENZA [Suspect]
     Indication: POST HERPETIC NEURALGIA
     Dosage: (2 DF 1X, PATCH, APPLIED TO T-8/9, ONCE] TOPICAL)
     Route: 061
     Dates: start: 20110707, end: 20110707
  2. NEURONTIN [Concomitant]
  3. HYDROCODONE BITARTRATE AND ACETAMINOPHEN [Concomitant]

REACTIONS (2)
  - APPLICATION SITE PAIN [None]
  - INSOMNIA [None]
